FAERS Safety Report 13050730 (Version 1)
Quarter: 2016Q4

REPORT INFORMATION
  Report Type: Spontaneous
  Country: US (occurrence: US)
  Receive Date: 20161221
  Receipt Date: 20161221
  Transmission Date: 20170207
  Serious: Yes (Other)
  Sender: FDA-Public Use
  Company Number: US-ENDO PHARMACEUTICALS INC.-2016-005266

PATIENT
  Sex: Male

DRUGS (2)
  1. OXYMORPHONE ER [Suspect]
     Active Substance: OXYMORPHONE
     Indication: PAIN
     Route: 065
  2. OPANA ER [Suspect]
     Active Substance: OXYMORPHONE HYDROCHLORIDE
     Indication: PAIN
     Route: 065

REACTIONS (3)
  - Malaise [Unknown]
  - Drug dependence [Unknown]
  - Activities of daily living impaired [Unknown]
